FAERS Safety Report 9967703 (Version 1)
Quarter: 2014Q1

REPORT INFORMATION
  Report Type: Report from Study
  Country: US (occurrence: US)
  Receive Date: 20140305
  Receipt Date: 20140305
  Transmission Date: 20141002
  Serious: No
  Sender: FDA-Public Use
  Company Number: US-ABBVIE-13P-163-1139333-00

PATIENT
  Age: 50 Year
  Sex: Male

DRUGS (8)
  1. HUMIRA [Suspect]
     Indication: SPONDYLOARTHROPATHY
     Dates: start: 20130114
  2. COZAAR [Concomitant]
     Indication: HYPERTENSION
  3. COREG [Concomitant]
     Indication: PRODUCT USED FOR UNKNOWN INDICATION
  4. NORVASC [Concomitant]
     Indication: PRODUCT USED FOR UNKNOWN INDICATION
  5. BUTALBITAL/ASPIRIN/CAFFEINE [Concomitant]
     Indication: PAIN
     Dosage: 325/50/40MG THREE TO FOUR TIMES DAILY
  6. AMERGE [Concomitant]
     Indication: HEADACHE
  7. AMERGE [Concomitant]
     Indication: MIGRAINE
  8. NEXIUM [Concomitant]
     Indication: PRODUCT USED FOR UNKNOWN INDICATION

REACTIONS (3)
  - Weight decreased [Recovering/Resolving]
  - Decreased appetite [Recovering/Resolving]
  - Stress [Recovering/Resolving]
